FAERS Safety Report 8830039 (Version 3)
Quarter: 2012Q4

REPORT INFORMATION
  Report Type: Report from Study
  Country: DE (occurrence: DE)
  Receive Date: 20121008
  Receipt Date: 20121123
  Transmission Date: 20130627
  Serious: Yes (Hospitalization, Other)
  Sender: FDA-Public Use
  Company Number: PHHY2012DE087345

PATIENT
  Age: 62 Year
  Sex: Female
  Weight: 69 kg

DRUGS (7)
  1. ZOLEDRONATE [Suspect]
     Indication: BONE DISORDER
     Dosage: 4 mg/ 5 ml
     Route: 042
     Dates: start: 20110818, end: 20110818
  2. EXJADE [Suspect]
     Indication: IRON OVERLOAD
     Dosage: 500 mg, UNK
     Route: 048
     Dates: start: 20100610, end: 20120824
  3. AROMASIN [Concomitant]
     Dosage: 25 mg, QD
     Route: 048
     Dates: start: 20111020
  4. TRASTUZUMAB [Concomitant]
     Dosage: UNK UKN, UNK
     Dates: start: 20110216
  5. HYPNOREX [Concomitant]
     Dosage: 400 mg, QD
     Route: 048
     Dates: start: 20100503
  6. HERCEPTIN [Concomitant]
     Dosage: 430 mg, QD
     Route: 042
     Dates: start: 20110216
  7. CITALOPRAM [Concomitant]
     Dosage: UNK UKN, UNK
     Route: 048
     Dates: start: 20111020

REACTIONS (7)
  - Hypokalaemia [Unknown]
  - Dehydration [Recovered/Resolved]
  - Anaemia [Unknown]
  - Diarrhoea [Unknown]
  - Vomiting [Unknown]
  - Nausea [Unknown]
  - General physical health deterioration [Unknown]
